FAERS Safety Report 4701784-5 (Version None)
Quarter: 2005Q2

REPORT INFORMATION
  Report Type: 
  Country: None (occurrence: None)
  Receive Date: 20050627
  Receipt Date: 20050614
  Transmission Date: 20051028
  Serious: Yes (Hospitalization, Other)
  Sender: FDA-Public Use
  Company Number: 2005088996

PATIENT
  Age: 11 Year
  Sex: Female
  Weight: 43.9989 kg

DRUGS (11)
  1. VFEND [Suspect]
     Indication: ASPERGILLOSIS
     Dosage: 200 MG (100 MG 2 IN 1 D) INTRAVENOUS; 300 MG (150 MG 2 IN 1 D INTRAVENOUS)
     Route: 042
     Dates: start: 20040501
  2. VFEND [Suspect]
     Indication: ASPERGILLOSIS
     Dosage: 200 MG (100 MG 2 IN 1 D) INTRAVENOUS; 300 MG (150 MG 2 IN 1 D INTRAVENOUS)
     Route: 042
     Dates: start: 20050501
  3. VFEND [Suspect]
     Indication: ASPERGILLOSIS
     Dosage: 200 MG (100 MG 2 IN 1 D) ORAL; 300 MG ORAL
     Route: 048
     Dates: start: 20050601, end: 20050601
  4. VFEND [Suspect]
     Indication: ASPERGILLOSIS
     Dosage: 200 MG (100 MG 2 IN 1 D) ORAL; 300 MG ORAL
     Route: 048
     Dates: end: 20050601
  5. ASPARGINASE (ASPARGINASE) [Suspect]
     Indication: LEUKAEMIA
     Dates: start: 20040101, end: 20040101
  6. ALL OTHER THEAPEUTIC PRODUCST (ALL OTHER THERAPEUTIC PRODUCTS0 [Suspect]
  7. MERCAPTOPURINE [Suspect]
     Indication: LEUKAEMIA
  8. METHOTREXATE [Suspect]
     Indication: LEUKAEMIA
  9. VINCRISTINE [Suspect]
     Indication: LEUKAEMIA
  10. CHEMOTHERAPY NOS (CHEMOTHERAPY NOS) [Concomitant]
  11. AMPHOTERICIN B [Concomitant]

REACTIONS (13)
  - ALANINE AMINOTRANSFERASE INCREASED [None]
  - ASPARTATE AMINOTRANSFERASE INCREASED [None]
  - BACK PAIN [None]
  - BLOOD ALKALINE PHOSPHATASE INCREASED [None]
  - BLOOD BILIRUBIN INCREASED [None]
  - BRONCHOPULMONARY ASPERGILLOSIS [None]
  - DRUG HYPERSENSITIVITY [None]
  - FLUSHING [None]
  - HEADACHE [None]
  - NEUTROPHIL COUNT INCREASED [None]
  - PANCREATITIS [None]
  - POST PROCEDURAL COMPLICATION [None]
  - SKIN EXFOLIATION [None]
